FAERS Safety Report 6736784-7 (Version None)
Quarter: 2010Q2

REPORT INFORMATION
  Report Type: 
  Country: None (occurrence: None)
  Receive Date: 20100521
  Receipt Date: 20100510
  Transmission Date: 20101027
  Serious: Yes (Hospitalization)
  Sender: FDA-Public Use
  Company Number: JP-ELI_LILLY_AND_COMPANY-JP200910001685

PATIENT
  Sex: Male

DRUGS (10)
  1. ZYPREXA FINE GRANULE 1% [Suspect]
     Indication: DEMENTIA ALZHEIMER'S TYPE
     Dosage: 2 MG, 2/D
     Route: 048
     Dates: start: 20080821, end: 20080828
  2. DEPAS [Concomitant]
     Dosage: 1 D/F, EACH EVENING
     Route: 048
     Dates: end: 20080828
  3. LENDORMIN [Concomitant]
     Dosage: 0.25 MG, EACH EVENING
     Route: 048
     Dates: end: 20080828
  4. MAGMITT [Concomitant]
     Dosage: 500 MG, 3/D
     Route: 048
  5. SHOUKENCHUUTOU [Concomitant]
     Dosage: 2.5 MG, 3/D
     Route: 048
  6. LOSARTAN POTASSIUM AND HYDROCHLOROTHIAZIDE [Concomitant]
     Dosage: 1 D/F, EACH MORNING
     Route: 048
  7. TENORMIN [Concomitant]
     Dosage: 25 MG, EACH MORNING
     Route: 048
  8. CINALONG [Concomitant]
     Dosage: 10 MG, EACH MORNING
     Route: 048
  9. ZESULAN [Concomitant]
     Dosage: 3 MG, 2/D
     Route: 048
  10. SENNOSIDE [Concomitant]
     Dosage: 24 MG, EACH EVENING
     Route: 048

REACTIONS (2)
  - DELIRIUM [None]
  - OFF LABEL USE [None]
